FAERS Safety Report 10565678 (Version 3)
Quarter: 2015Q1

REPORT INFORMATION
  Report Type: Spontaneous
  Country: US (occurrence: US)
  Receive Date: 20141105
  Receipt Date: 20150210
  Transmission Date: 20150720
  Serious: Yes (Death, Hospitalization)
  Sender: FDA-Public Use
  Company Number: US-UNITED THERAPEUTICS-UNT-2014-010090

PATIENT
  Age: 69 Year
  Sex: Female

DRUGS (2)
  1. REMODULIN [Suspect]
     Active Substance: TREPROSTINIL
     Indication: PULMONARY ARTERIAL HYPERTENSION
     Dosage: 0.0185 ?G/KG, 0.025ML/HR, CONTINUING
     Route: 058
     Dates: start: 20140904, end: 20141023
  2. WARFARIN [Concomitant]
     Active Substance: WARFARIN
     Indication: ATRIAL FIBRILLATION

REACTIONS (22)
  - Device dislocation [Unknown]
  - Soft tissue infection [Fatal]
  - Left ventricular failure [Fatal]
  - Pulmonary arterial hypertension [Fatal]
  - Multi-organ failure [Fatal]
  - Dyspnoea [Fatal]
  - Pulmonary oedema [Fatal]
  - Chills [Unknown]
  - Acute respiratory failure [Fatal]
  - Oxygen saturation decreased [Fatal]
  - Vomiting [Unknown]
  - Acute respiratory distress syndrome [Fatal]
  - Atrial fibrillation [Fatal]
  - Cardiogenic shock [Fatal]
  - Cardiac failure congestive [Fatal]
  - Cyanosis [Unknown]
  - Drug dose omission [Recovered/Resolved]
  - Septic shock [Fatal]
  - Sleep apnoea syndrome [Fatal]
  - Streptococcal bacteraemia [Fatal]
  - Nausea [Unknown]
  - Device issue [Recovered/Resolved]

NARRATIVE: CASE EVENT DATE: 2014
